FAERS Safety Report 21348089 (Version 2)
Quarter: 2022Q4

REPORT INFORMATION
  Report Type: Report from Study
  Country: US (occurrence: US)
  Receive Date: 20220919
  Receipt Date: 20221102
  Transmission Date: 20230112
  Serious: Yes (Other)
  Sender: FDA-Public Use
  Company Number: US-UCBSA-2022054980

PATIENT
  Age: 7 Year
  Sex: Male
  Weight: 21.3 kg

DRUGS (2)
  1. FINTEPLA [Suspect]
     Active Substance: FENFLURAMINE
     Indication: Product used for unknown indication
     Dosage: 3 MILLILITER, 2X/DAY (BID)
     Dates: start: 20210215
  2. FINTEPLA [Suspect]
     Active Substance: FENFLURAMINE
     Dosage: 1.5 MILLILITER, 2X/DAY (BID)

REACTIONS (2)
  - Mitral valve incompetence [Not Recovered/Not Resolved]
  - Vagal nerve stimulator implantation [Recovered/Resolved]

NARRATIVE: CASE EVENT DATE: 20220908
